FAERS Safety Report 10541682 (Version 1)
Quarter: 2014Q4

REPORT INFORMATION
  Report Type: Spontaneous
  Country: None (occurrence: US)
  Receive Date: 20141024
  Receipt Date: 20141024
  Transmission Date: 20150529
  Serious: No
  Sender: FDA-Public Use
  Company Number: US-ALLERGAN-1405279US

PATIENT
  Age: 70 Year
  Sex: Male

DRUGS (6)
  1. BUSPAR [Concomitant]
     Active Substance: BUSPIRONE HYDROCHLORIDE
     Indication: ANXIETY
     Dosage: UNK UNK, PRN
  2. ALPHAGAN P [Suspect]
     Active Substance: BRIMONIDINE TARTRATE
     Indication: GLAUCOMA
     Dosage: 2 GTT, SINGLE
     Route: 047
     Dates: start: 20140313
  3. ALPHAGAN P [Suspect]
     Active Substance: BRIMONIDINE TARTRATE
     Dosage: 2 GTT, BID
     Route: 047
     Dates: start: 201309
  4. REFRESH OPTIVE [Concomitant]
     Active Substance: CARBOXYMETHYLCELLULOSE SODIUM\GLYCERIN
     Indication: PRODUCT USED FOR UNKNOWN INDICATION
     Dosage: UNK UNK, PRN
     Route: 047
  5. VISINE TEARS DRY EYE RELIEF [Concomitant]
     Active Substance: GLYCERIN\HYPROMELLOSES\POLYETHYLENE GLYCOL 400
     Indication: EYE LUBRICATION THERAPY
     Dosage: UNK UNK, QD
     Route: 047
  6. ZIOPTAN [Concomitant]
     Active Substance: TAFLUPROST
     Indication: INTRAOCULAR PRESSURE INCREASED

REACTIONS (3)
  - Scleral hyperaemia [Recovered/Resolved]
  - Lacrimation increased [Not Recovered/Not Resolved]
  - Eyelid oedema [Recovered/Resolved]

NARRATIVE: CASE EVENT DATE: 20140201
